FAERS Safety Report 5300522-5 (Version None)
Quarter: 2007Q2

REPORT INFORMATION
  Report Type: 
  Country: None (occurrence: None)
  Receive Date: 20070413
  Receipt Date: 20070413
  Transmission Date: 20071010
  Serious: Yes (Hospitalization)
  Sender: FDA-Public Use
  Company Number: None

PATIENT
  Age: 60 Year
  Sex: Female
  Weight: 74.8435 kg

DRUGS (2)
  1. CIPROFLOXACIN [Suspect]
     Indication: BLADDER OPERATION
     Dosage: 10 ONCE DAILY PO
     Route: 048
     Dates: start: 20061116, end: 20061126
  2. LEVAQUIN [Suspect]
     Indication: SINUSITIS
     Dosage: 5 ONCE DAILY PO
     Route: 048
     Dates: start: 20070118, end: 20070122

REACTIONS (2)
  - INJURY [None]
  - TENDON RUPTURE [None]
